FAERS Safety Report 7625710 (Version 9)
Quarter: 2013Q4

REPORT INFORMATION
  Report Type: Spontaneous
  Country: US (occurrence: US)
  Receive Date: 20101012
  Receipt Date: 20131017
  Transmission Date: 20140711
  Serious: Yes (Hospitalization, Congenital Anomaly, Other)
  Sender: FDA-Public Use
  Company Number: US-PFIZER INC-2010128174

PATIENT
  Sex: Male
  Weight: 1.9 kg

DRUGS (15)
  1. ZOLOFT [Suspect]
     Indication: ANXIETY
     Dosage: 50 MG
     Route: 064
     Dates: start: 2002
  2. ZOLOFT [Suspect]
     Indication: DEPRESSION
  3. METFORMIN [Concomitant]
     Dosage: 500 MG, UNK
     Route: 064
  4. CLOMID [Concomitant]
     Dosage: UNK
     Route: 064
  5. PRENATAL VITAMINS [Concomitant]
     Dosage: UNK
     Route: 064
  6. FOLIC ACID [Concomitant]
     Dosage: UNK
     Route: 064
  7. IBUPROFEN [Concomitant]
     Dosage: UNK
     Route: 064
  8. SOMA [Concomitant]
     Dosage: UNK
     Route: 064
  9. CITRACAL [Concomitant]
     Route: 064
  10. MOTRIN [Concomitant]
     Dosage: UNK
     Route: 064
  11. RANITIDINE [Concomitant]
     Dosage: UNK
     Route: 064
  12. IRON [Concomitant]
     Dosage: UNK
     Route: 064
  13. BETAMETHASONE [Concomitant]
     Dosage: UNK
     Route: 064
  14. ANCEF [Concomitant]
     Dosage: UNK
     Route: 064
  15. CLINDAMYCIN [Concomitant]
     Dosage: UNK
     Route: 064

REACTIONS (28)
  - Foetal exposure during pregnancy [Unknown]
  - Aortic stenosis [Not Recovered/Not Resolved]
  - Apnoea neonatal [Unknown]
  - Respiratory depression [Recovered/Resolved]
  - Hyperbilirubinaemia [Recovered/Resolved]
  - Feeding disorder neonatal [Recovered/Resolved]
  - Anaemia [Recovered/Resolved]
  - Premature baby [Unknown]
  - Hypotension [Recovered/Resolved]
  - Hypocalcaemia [Recovered/Resolved]
  - Hypoalbuminaemia [Recovered/Resolved]
  - Body temperature fluctuation [Recovered/Resolved]
  - Heart disease congenital [Recovering/Resolving]
  - Aortic valve incompetence [Not Recovered/Not Resolved]
  - Tricuspid valve incompetence [Recovered/Resolved]
  - Pulmonary valve incompetence [Recovered/Resolved]
  - Mitral valve incompetence [Unknown]
  - Low set ears [Unknown]
  - Bradycardia [Unknown]
  - Speech disorder [Unknown]
  - Autism [Not Recovered/Not Resolved]
  - Aortic dilatation [Not Recovered/Not Resolved]
  - Left ventricular hypertrophy [Unknown]
  - Strabismus congenital [Not Recovered/Not Resolved]
  - Bicuspid aortic valve [Unknown]
  - Congenital aortic valve stenosis [Unknown]
  - Attention deficit/hyperactivity disorder [Unknown]
  - Aggression [Recovering/Resolving]
